FAERS Safety Report 20632278 (Version 19)
Quarter: 2023Q1

REPORT INFORMATION
  Report Type: Report from Study
  Country: BR (occurrence: BR)
  Receive Date: 20220324
  Receipt Date: 20230317
  Transmission Date: 20230417
  Serious: Yes (Hospitalization, Other)
  Sender: FDA-Public Use
  Company Number: BR-JNJFOC-20220339745

PATIENT
  Age: 23 Year
  Sex: Male
  Weight: 98 kg

DRUGS (22)
  1. SPRAVATO [Suspect]
     Active Substance: ESKETAMINE
     Indication: Major depression
     Dosage: 3 DEVICES?ALSO REPORTED AS 84 MG, 21-FEB-2022, BIWEEKLY
     Dates: start: 20220211
  2. SPRAVATO [Suspect]
     Active Substance: ESKETAMINE
     Indication: Suicidal ideation
     Dosage: OPTIMIZATION PHASE (SECOND MONTH OF TREATMENT): FOR 4 WEEKS.
  3. SPRAVATO [Suspect]
     Active Substance: ESKETAMINE
     Dates: start: 20220425
  4. SPRAVATO [Suspect]
     Active Substance: ESKETAMINE
     Dates: start: 20220928
  5. SPRAVATO [Suspect]
     Active Substance: ESKETAMINE
     Dates: start: 2022
  6. SPRAVATO [Suspect]
     Active Substance: ESKETAMINE
     Dosage: MAINTENANCE PHASE, 3 SPRAYS
     Dates: start: 2022
  7. SPRAVATO [Suspect]
     Active Substance: ESKETAMINE
  8. SPRAVATO [Suspect]
     Active Substance: ESKETAMINE
     Dosage: 3 DEVICES
     Dates: end: 20230206
  9. AMITRIPTYLINE HYDROCHLORIDE [Concomitant]
     Active Substance: AMITRIPTYLINE HYDROCHLORIDE
     Route: 065
  10. QUETIAPINE [Concomitant]
     Active Substance: QUETIAPINE
     Route: 065
  11. LYDIAN [Concomitant]
     Route: 065
  12. VENLAFAXINE [Concomitant]
     Active Substance: VENLAFAXINE HYDROCHLORIDE
  13. LORATADINE [Concomitant]
     Active Substance: LORATADINE
  14. LITHIUM [Concomitant]
     Active Substance: LITHIUM
  15. AMPLICTIL [CHLORPROMAZINE] [Concomitant]
  16. LOSARTAN [Concomitant]
     Active Substance: LOSARTAN
  17. AMLODIPINE [Concomitant]
     Active Substance: AMLODIPINE BESYLATE
  18. TRAZODONE HYDROCHLORIDE [Concomitant]
     Active Substance: TRAZODONE HYDROCHLORIDE
  19. HYDROCHLOROTHIAZIDE\VALSARTAN [Concomitant]
     Active Substance: HYDROCHLOROTHIAZIDE\VALSARTAN
  20. AMITRIPTYLINE [Concomitant]
     Active Substance: AMITRIPTYLINE
  21. VALSARTAN [Concomitant]
     Active Substance: VALSARTAN
     Route: 065
  22. QUETIALIN [Concomitant]
     Dosage: QUETIALIN XR
     Route: 065

REACTIONS (8)
  - Suicide attempt [Unknown]
  - Depression [Not Recovered/Not Resolved]
  - Vomiting [Unknown]
  - Suicidal ideation [Recovering/Resolving]
  - Drug ineffective [Unknown]
  - Panic attack [Recovering/Resolving]
  - Somnolence [Unknown]
  - Off label use [Unknown]

NARRATIVE: CASE EVENT DATE: 20220101
